FAERS Safety Report 8982675 (Version 8)
Quarter: 2013Q3

REPORT INFORMATION
  Report Type: Spontaneous
  Country: US (occurrence: US)
  Receive Date: 20121224
  Receipt Date: 20130809
  Transmission Date: 20140515
  Serious: Yes (Hospitalization, Other)
  Sender: FDA-Public Use
  Company Number: US-ROCHE-552244

PATIENT
  Age: 15 Year
  Sex: Female
  Weight: 60.8 kg

DRUGS (11)
  1. ACCUTANE [Suspect]
     Indication: ACNE
     Dosage: 40 MG EVERY HOUR OF SLEEP AND 10 MG EVERY MORNING
     Route: 048
     Dates: start: 19980721, end: 199902
  2. ACCUTANE [Suspect]
     Route: 048
     Dates: start: 20011110, end: 200111
  3. ACCUTANE [Suspect]
     Route: 048
     Dates: start: 200111, end: 20011201
  4. ACCUTANE [Suspect]
     Route: 048
     Dates: start: 20011202, end: 20020129
  5. ACCUTANE [Suspect]
     Dosage: 3 TABLETS ODD DAYS, 4 TABLETS EVEN DAYS, FOR AN AVERAGE DOSE OF 70 MG
     Route: 048
     Dates: start: 20020130, end: 20020321
  6. ACCUTANE [Suspect]
     Route: 048
     Dates: start: 20020322, end: 20020416
  7. ORTHO TRI-CYCLEN [Concomitant]
     Indication: PRODUCT USED FOR UNKNOWN INDICATION
  8. LEXAPRO [Concomitant]
     Indication: PRODUCT USED FOR UNKNOWN INDICATION
  9. WELLBUTRIN [Concomitant]
     Indication: PRODUCT USED FOR UNKNOWN INDICATION
  10. REMERON [Concomitant]
     Indication: PRODUCT USED FOR UNKNOWN INDICATION
  11. PAXIL [Concomitant]
     Indication: PRODUCT USED FOR UNKNOWN INDICATION

REACTIONS (24)
  - Colitis ulcerative [Unknown]
  - Pancreatitis [Recovering/Resolving]
  - Pancytopenia [Unknown]
  - Anaemia [Unknown]
  - Weight decreased [Unknown]
  - Crohn^s disease [Unknown]
  - Inflammatory bowel disease [Unknown]
  - Depression [Recovering/Resolving]
  - Blood triglycerides increased [Recovering/Resolving]
  - Anal fistula [Unknown]
  - Osteopenia [Unknown]
  - Irritable bowel syndrome [Unknown]
  - Lip dry [Unknown]
  - Epistaxis [Recovering/Resolving]
  - Arthralgia [Unknown]
  - Myalgia [Unknown]
  - Alopecia [Unknown]
  - Chapped lips [Unknown]
  - Aphthous stomatitis [Recovering/Resolving]
  - Temporomandibular joint syndrome [Unknown]
  - Dry skin [Unknown]
  - Full blood count decreased [Unknown]
  - Blood alkaline phosphatase increased [Recovering/Resolving]
  - Nephrolithiasis [Unknown]
